FAERS Safety Report 19549857 (Version 2)
Quarter: 2021Q3

REPORT INFORMATION
  Report Type: Report from Study
  Country: US (occurrence: US)
  Receive Date: 20210715
  Receipt Date: 20210817
  Transmission Date: 20211014
  Serious: Yes (Life-Threatening, Other)
  Sender: FDA-Public Use
  Company Number: US-BEH-2021133929

PATIENT
  Age: 54 Year
  Sex: Female

DRUGS (1)
  1. HIZENTRA [Suspect]
     Active Substance: HUMAN IMMUNOGLOBULIN G
     Indication: PRIMARY IMMUNODEFICIENCY SYNDROME
     Dosage: 10 GRAM, QW
     Route: 058
     Dates: start: 20210328, end: 20210727

REACTIONS (7)
  - Haemoptysis [Unknown]
  - Therapy cessation [Unknown]
  - Secretion discharge [Unknown]
  - Pulmonary embolism [Unknown]
  - Malaise [Unknown]
  - Tachycardia [Unknown]
  - No adverse event [Unknown]

NARRATIVE: CASE EVENT DATE: 20210625
